FAERS Safety Report 21364377 (Version 1)
Quarter: 2022Q3

REPORT INFORMATION
  Report Type: Report from Study
  Country: US (occurrence: US)
  Receive Date: 20220922
  Receipt Date: 20220922
  Transmission Date: 20221027
  Serious: Yes (Hospitalization)
  Sender: FDA-Public Use
  Company Number: US-VERTEX PHARMACEUTICALS-2022-013937

PATIENT
  Sex: Female

DRUGS (32)
  1. TRIKAFTA [Suspect]
     Active Substance: ELEXACAFTOR\IVACAFTOR\TEZACAFTOR
     Indication: Cystic fibrosis
     Dosage: 2 TABS AM
     Route: 048
     Dates: start: 202002
  2. CAYSTON [Concomitant]
     Active Substance: AZTREONAM
  3. TACROLIMUS [Concomitant]
     Active Substance: TACROLIMUS
     Dosage: 5 MILLIGRAM
  4. TACROLIMUS [Concomitant]
     Active Substance: TACROLIMUS
     Dosage: 0.5 UNK
  5. TACROLIMUS [Concomitant]
     Active Substance: TACROLIMUS
     Dosage: 1 UNK
  6. ZANIDINE [Concomitant]
  7. VITAMIN E [Concomitant]
     Active Substance: .ALPHA.-TOCOPHEROL
  8. HYDROMORPHONE HCL [Concomitant]
     Active Substance: HYDROMORPHONE HYDROCHLORIDE
  9. DUONEB [Concomitant]
     Active Substance: ALBUTEROL SULFATE\IPRATROPIUM BROMIDE
     Dosage: 3 ML
  10. CLONAZEPAM [Concomitant]
     Active Substance: CLONAZEPAM
  11. DOCUSATE SOD [Concomitant]
  12. FEXOFENADINE [Concomitant]
     Active Substance: FEXOFENADINE HYDROCHLORIDE
  13. GLUCAGON [Concomitant]
     Active Substance: GLUCAGON
     Dosage: 1 VL
  14. CALCIUM CITRATE [Concomitant]
     Active Substance: CALCIUM CITRATE
  15. CLINDAMYCIN [Concomitant]
     Active Substance: CLINDAMYCIN
  16. VITAMIN C [Concomitant]
     Active Substance: ASCORBIC ACID
  17. FORTEO [Concomitant]
     Active Substance: TERIPARATIDE
  18. BASAGLAR KWIKPEN [Concomitant]
     Active Substance: INSULIN GLARGINE
     Dosage: 3 ML
     Route: 058
  19. GABAPENTIN [Concomitant]
     Active Substance: GABAPENTIN
  20. MYCOPHENOLIC ACID [Concomitant]
     Active Substance: MYCOPHENOLIC ACID
  21. ATROVENT HFA [Concomitant]
     Active Substance: IPRATROPIUM BROMIDE
     Route: 048
  22. VITAMIN D2 [Concomitant]
     Active Substance: ERGOCALCIFEROL
  23. DEEP SEA [Concomitant]
  24. FLONASE SENSIMIST ALLERGY RELIEF [Concomitant]
     Active Substance: FLUTICASONE FUROATE
  25. SODIUM CHLORIDE [Concomitant]
     Active Substance: SODIUM CHLORIDE
  26. FLUDROCORTISONE [Concomitant]
     Active Substance: FLUDROCORTISONE
  27. SERTRALINE [Concomitant]
     Active Substance: SERTRALINE HYDROCHLORIDE
  28. FAMOTIDINE [Concomitant]
     Active Substance: FAMOTIDINE
  29. FERROUS SULFATE [Concomitant]
     Active Substance: FERROUS SULFATE
  30. GRANISETRON [Concomitant]
     Active Substance: GRANISETRON
  31. SULFAMETHOXAZOLE\TRIMETHOPRIM [Concomitant]
     Active Substance: SULFAMETHOXAZOLE\TRIMETHOPRIM
     Dosage: 800/160MG
  32. TRAMADOL [Concomitant]
     Active Substance: TRAMADOL

REACTIONS (2)
  - Pneumonia [Recovered/Resolved]
  - Nausea [Not Recovered/Not Resolved]

NARRATIVE: CASE EVENT DATE: 20220101
